FAERS Safety Report 15318828 (Version 1)
Quarter: 2018Q3

REPORT INFORMATION
  Report Type: Spontaneous
  Country: US (occurrence: US)
  Receive Date: 20180819
  Receipt Date: 20180819
  Transmission Date: 20181010
  Serious: Yes (Disabling)
  Sender: FDA-Public Use
  Company Number: None

PATIENT
  Age: 56 Year
  Sex: Female
  Weight: 58.5 kg

DRUGS (11)
  1. MUCINEX [Concomitant]
     Active Substance: GUAIFENESIN
  2. HYDROCODONE/ACETAMINOPHEN 10/325 MG [Suspect]
     Active Substance: ACETAMINOPHEN\HYDROCODONE
     Indication: INTERVERTEBRAL DISC DEGENERATION
     Dosage: ?          QUANTITY:180 TABLET(S);?
     Route: 048
     Dates: start: 20180730
  3. LAVANDER OIL [Concomitant]
  4. CHAMOMILE OIL [Concomitant]
     Active Substance: CHAMOMILE FLOWER OIL
  5. EFFEXOR [Concomitant]
     Active Substance: VENLAFAXINE HYDROCHLORIDE
  6. CLONIDINE. [Concomitant]
     Active Substance: CLONIDINE
  7. VALERIAN POWDER [Concomitant]
  8. PASSION FLOWER EXTRACT [Concomitant]
     Active Substance: PASSIFLORA EDULIS FLOWER
  9. IBUPROFEN. [Concomitant]
     Active Substance: IBUPROFEN
  10. CLONAZEPAM. [Concomitant]
     Active Substance: CLONAZEPAM
  11. ANTIHISTAMINE [Concomitant]
     Active Substance: ANTIHISTAMINES NOS

REACTIONS (10)
  - Dyspnoea [None]
  - Insomnia [None]
  - Nausea [None]
  - Blood pressure increased [None]
  - Pain [None]
  - Loss of personal independence in daily activities [None]
  - Product substitution issue [None]
  - Drug effect decreased [None]
  - Headache [None]
  - Anxiety [None]

NARRATIVE: CASE EVENT DATE: 20180801
